FAERS Safety Report 4401324-4 (Version None)
Quarter: 2004Q3

REPORT INFORMATION
  Report Type: 
  Country: None (occurrence: None)
  Receive Date: 20040907
  Receipt Date: 20040308
  Transmission Date: 20050211
  Serious: No
  Sender: FDA-Public Use
  Company Number: US-BRISTOL-MYERS SQUIBB COMPANY-12526869

PATIENT
  Sex: Female

DRUGS (8)
  1. COUMADIN [Suspect]
     Indication: DEEP VEIN THROMBOSIS
     Dosage: DOSE VALUE:  5 MG TWO DAYS A WEEK, ALTERNATING WITH 2.5 MG ON THE OTHER DAYS.
     Route: 048
  2. PEPCID [Concomitant]
  3. LANOXIN [Concomitant]
  4. SYNTHROID [Concomitant]
  5. LOTENSIN [Concomitant]
  6. FUROSEMIDE [Concomitant]
  7. SECTRAL [Concomitant]
  8. VITAMIN K TAB [Concomitant]

REACTIONS (2)
  - DRUG INEFFECTIVE [None]
  - INTERNATIONAL NORMALISED RATIO ABNORMAL [None]
